FAERS Safety Report 21917000 (Version 1)
Quarter: 2023Q1

REPORT INFORMATION
  Report Type: Spontaneous
  Country: CA (occurrence: CA)
  Receive Date: 20230126
  Receipt Date: 20230126
  Transmission Date: 20230418
  Serious: Yes (Other)
  Sender: FDA-Public Use
  Company Number: CA-BAYER-2023A008243

PATIENT
  Age: 41 Year
  Sex: Female

DRUGS (5)
  1. CIPRO [Suspect]
     Active Substance: CIPROFLOXACIN HYDROCHLORIDE
     Indication: Psoriasis
     Dosage: 2 EVERY 1 DAYS
     Route: 048
  2. PHENYTOIN SODIUM [Suspect]
     Active Substance: PHENYTOIN SODIUM
     Indication: Epilepsy
     Dosage: 200 MG, BID
  3. CLOBAZAM [Concomitant]
     Active Substance: CLOBAZAM
  4. CLONAZEPAM [Concomitant]
     Active Substance: CLONAZEPAM
  5. OMEPRAZOLE [Concomitant]
     Active Substance: OMEPRAZOLE

REACTIONS (2)
  - Seizure [Unknown]
  - Drug interaction [Unknown]
